FAERS Safety Report 21063318 (Version 1)
Quarter: 2022Q3

REPORT INFORMATION
  Report Type: Spontaneous
  Country: US (occurrence: US)
  Receive Date: 20220711
  Receipt Date: 20220711
  Transmission Date: 20221027
  Serious: No
  Sender: FDA-Public Use
  Company Number: US-AUROBINDO-AUR-APL-2021-052300

PATIENT
  Age: 73 Year
  Sex: Male
  Weight: 83.914 kg

DRUGS (1)
  1. CLOPIDOGREL [Suspect]
     Active Substance: CLOPIDOGREL BISULFATE
     Indication: Hypertension
     Dosage: UNK, ONCE A DAY (ONLY IN THE MORNING WITH BREAKFAST)
     Route: 065
     Dates: start: 201905

REACTIONS (1)
  - Feeling cold [Unknown]
